FAERS Safety Report 5473217-5 (Version None)
Quarter: 2007Q4

REPORT INFORMATION
  Report Type: 
  Country: None (occurrence: None)
  Receive Date: 20071001
  Receipt Date: 20070919
  Transmission Date: 20080405
  Serious: Yes (Other)
  Sender: FDA-Public Use
  Company Number: GB-ROCHE-520025

PATIENT
  Age: 66 Year
  Sex: Female
  Weight: 84.4 kg

DRUGS (3)
  1. ORLISTAT [Suspect]
     Indication: OBESITY
     Route: 048
     Dates: start: 20070525, end: 20070919
  2. AMLODIPINE [Concomitant]
     Indication: HYPERTENSION
     Dosage: DRUG NAME REPORTED AS AMALODOPINE.
     Route: 048
  3. ASPIRIN [Concomitant]
     Indication: THROMBOSIS PROPHYLAXIS
     Route: 048

REACTIONS (1)
  - RETINAL DETACHMENT [None]
